FAERS Safety Report 7028131-0 (Version None)
Quarter: 2010Q4

REPORT INFORMATION
  Report Type: 
  Country: None (occurrence: None)
  Receive Date: 20101005
  Receipt Date: 20100929
  Transmission Date: 20110411
  Serious: Yes (Hospitalization, Other)
  Sender: FDA-Public Use
  Company Number: NL-SANOFI-AVENTIS-2009SA004151

PATIENT
  Age: 49 Year
  Sex: Male

DRUGS (8)
  1. FLUDARABINE PHOSPHATE [Suspect]
     Dosage: TAKEN OVER 3 CONSECUTIVE DAYS PER CYCLE EVERY 4 WEEKS
     Route: 048
     Dates: start: 20090324, end: 20090828
  2. ALEMTUZUMAB [Suspect]
     Dosage: OVER THREE CONSECUTIVE DAYS PER CYCLE EVERY 4 WEEKS
     Route: 058
     Dates: start: 20090324, end: 20090828
  3. CYCLOPHOSPHAMIDE [Suspect]
     Dosage: OVER THREE CONSECUTIVE DAYS PER CYCLE EVERY 4 WEEKS
     Route: 048
     Dates: start: 20090324, end: 20090828
  4. ACENOCOUMAROL [Concomitant]
     Indication: PROPHYLAXIS
     Route: 048
     Dates: start: 20090915, end: 20091101
  5. VALACYCLOVIR [Concomitant]
     Indication: PROPHYLAXIS
     Route: 048
     Dates: start: 20090324, end: 20091101
  6. COTRIM [Concomitant]
     Indication: PROPHYLAXIS
     Route: 048
     Dates: start: 20090324, end: 20091101
  7. FLUCONAZOLE [Concomitant]
     Indication: PROPHYLAXIS
     Route: 048
     Dates: start: 20090324, end: 20091101
  8. OMEPRAZOLE [Concomitant]
     Indication: PROPHYLAXIS
     Route: 048
     Dates: start: 20090730, end: 20091101

REACTIONS (3)
  - DISSEMINATED LARGE CELL LYMPHOMA [None]
  - GASTROINTESTINAL INFECTION [None]
  - PYREXIA [None]
